FAERS Safety Report 23099169 (Version 1)
Quarter: 2023Q4

REPORT INFORMATION
  Report Type: Spontaneous
  Country: US (occurrence: US)
  Receive Date: 20231024
  Receipt Date: 20231024
  Transmission Date: 20240110
  Serious: No
  Sender: FDA-Public Use
  Company Number: US-TEVA-2023-US-2933791

PATIENT
  Age: 90 Year
  Sex: Male

DRUGS (1)
  1. BUDESONIDE [Suspect]
     Active Substance: BUDESONIDE
     Indication: Product used for unknown indication
     Dosage: 0.25/2 MG/ML
     Route: 065

REACTIONS (3)
  - Abnormal sensation in eye [Unknown]
  - Accidental exposure to product [Unknown]
  - Product prescribing issue [Unknown]
